FAERS Safety Report 9563745 (Version 1)
Quarter: 2013Q3

REPORT INFORMATION
  Report Type: Spontaneous
  Country: IQ (occurrence: None)
  Receive Date: 20130926
  Receipt Date: 20130926
  Transmission Date: 20140515
  Serious: Yes (Death)
  Sender: FDA-Public Use
  Company Number: SYM-2013-10950

PATIENT
  Age: 27 Year
  Sex: Female

DRUGS (4)
  1. FLAGYL [Suspect]
     Indication: PROPHYLAXIS
     Dosage: 500 MG, 3 IN 1 D, INTRAVENOUS (NOT OTHERWISE SPECIFIED)
     Route: 042
  2. TRAMAL [Suspect]
     Indication: ANALGESIC THERAPY
     Dosage: 2 IN 1 D, INTRAVENOOUS (NOT OTHERWISE SPECIFIED)
  3. GLUCOSE/SODIUM CHLORIDE [Suspect]
     Indication: PRODUCT USED FOR UNKNOWN INDICATION
  4. SEFOTAK [Suspect]
     Dosage: 1 GM, 3 IN 1 D, INTRAVENOUS (NOT OTHERWISE SPECIFIED)

REACTIONS (2)
  - Anaphylactic shock [None]
  - Embolism [None]
